FAERS Safety Report 9540990 (Version 1)
Quarter: 2013Q3

REPORT INFORMATION
  Report Type: Spontaneous
  Country: US (occurrence: US)
  Receive Date: 20130922
  Receipt Date: 20130922
  Transmission Date: 20140515
  Serious: No
  Sender: FDA-Public Use
  Company Number: US-ALLERGAN-1212599US

PATIENT
  Sex: Male

DRUGS (6)
  1. SANCTURA XR [Suspect]
     Indication: HYPERTONIC BLADDER
     Dosage: 60 MG, QD
     Route: 048
     Dates: start: 20120728, end: 20120908
  2. SANCTURA XR [Suspect]
     Dosage: 60 MG, QOD
     Route: 048
     Dates: start: 20120909
  3. FLOMAX [Concomitant]
     Indication: BENIGN PROSTATIC HYPERPLASIA
     Dosage: 0.4 UNK, UNK
     Route: 048
  4. GABAPENTIN [Concomitant]
     Indication: MUSCLE SPASMS
     Dosage: 300 MG, TID
  5. GABAPENTIN [Concomitant]
     Dosage: 100 MG, PRN
  6. BACLOFEN [Concomitant]
     Indication: MUSCULOSKELETAL STIFFNESS
     Dosage: 10 MG, QID

REACTIONS (7)
  - Asthenia [Recovered/Resolved]
  - Malaise [Recovered/Resolved]
  - Dry mouth [Recovering/Resolving]
  - Pyrexia [Recovered/Resolved]
  - Influenza like illness [Recovered/Resolved]
  - Fall [Recovered/Resolved]
  - Constipation [Not Recovered/Not Resolved]
